FAERS Safety Report 13115903 (Version 1)
Quarter: 2017Q1

REPORT INFORMATION
  Report Type: Report from Study
  Country: FR (occurrence: FR)
  Receive Date: 20170115
  Receipt Date: 20170115
  Transmission Date: 20170428
  Serious: Yes (Other)
  Sender: FDA-Public Use
  Company Number: FR-ROCHE-1868326

PATIENT
  Sex: Male
  Weight: 53 kg

DRUGS (4)
  1. CARBOPLATINE [Suspect]
     Active Substance: CARBOPLATIN
     Indication: NEOPLASM MALIGNANT
     Dosage: 4 AUC?DATE OF LAST DOSE: 21-NOV-2016
     Route: 042
     Dates: start: 20161117
  2. IFOSFAMIDE. [Suspect]
     Active Substance: IFOSFAMIDE
     Indication: NEOPLASM MALIGNANT
     Dosage: DATE OF LAST DOSE: 21-NOV-2016
     Route: 042
     Dates: start: 20161117
  3. BEVACIZUMAB [Suspect]
     Active Substance: BEVACIZUMAB
     Indication: NEOPLASM MALIGNANT
     Dosage: DATE OF LAST DOSE: 16-NOV-2016
     Route: 042
     Dates: start: 20161116
  4. ETOPOSIDE. [Suspect]
     Active Substance: ETOPOSIDE
     Indication: NEOPLASM MALIGNANT
     Dosage: DATE OF LAST DOSE: 21-NOV-2016
     Route: 042
     Dates: start: 20161117

REACTIONS (2)
  - Oxygen saturation decreased [Recovered/Resolved]
  - Pneumonia [Recovered/Resolved]

NARRATIVE: CASE EVENT DATE: 20161202
